FAERS Safety Report 5254474-7 (Version None)
Quarter: 2007Q1

REPORT INFORMATION
  Report Type: 
  Country: None (occurrence: None)
  Receive Date: 20070302
  Receipt Date: 20070226
  Transmission Date: 20070707
  Serious: Yes (Other)
  Sender: FDA-Public Use
  Company Number: US-PFIZER INC-2006129300

PATIENT
  Sex: Male
  Weight: 96.2 kg

DRUGS (3)
  1. LIPITOR [Suspect]
     Indication: BLOOD CHOLESTEROL INCREASED
  2. PREVACID [Concomitant]
  3. PRILOSEC [Concomitant]
     Dosage: DAILY DOSE:20MG
     Route: 048

REACTIONS (2)
  - DERMATITIS EXFOLIATIVE [None]
  - SKIN EXFOLIATION [None]
